FAERS Safety Report 10086685 (Version 1)
Quarter: 2014Q2

REPORT INFORMATION
  Report Type: Spontaneous
  Country: US (occurrence: None)
  Receive Date: 20140417
  Receipt Date: 20140417
  Transmission Date: 20141212
  Serious: Yes (Other)
  Sender: FDA-Public Use
  Company Number: None

PATIENT
  Age: 66 Year
  Sex: Female
  Weight: 50.8 kg

DRUGS (3)
  1. GABAPENTIN [Suspect]
     Indication: NEURALGIA
     Dosage: 4 PILLS QID ORAL
     Dates: start: 20100401, end: 20100430
  2. ULTRAM [Concomitant]
  3. KLONOPIN [Concomitant]

REACTIONS (3)
  - Pain [None]
  - Drug ineffective [None]
  - Product substitution issue [None]
